FAERS Safety Report 5472276-3 (Version None)
Quarter: 2007Q3

REPORT INFORMATION
  Report Type: 
  Country: None (occurrence: None)
  Receive Date: 20070927
  Receipt Date: 20070913
  Transmission Date: 20080115
  Serious: Yes (Death)
  Sender: FDA-Public Use
  Company Number: DSA_30313_2007

PATIENT
  Sex: Female
  Weight: 51.7101 kg

DRUGS (1)
  1. CARDIZEM LA [Suspect]
     Indication: DRUG USE FOR UNKNOWN INDICATION
     Dosage: 240 MG DF
     Dates: start: 20050101

REACTIONS (1)
  - DEATH [None]
